FAERS Safety Report 4449927-5 (Version None)
Quarter: 2004Q3

REPORT INFORMATION
  Report Type: 
  Country: None (occurrence: None)
  Receive Date: 20040803
  Receipt Date: 20040406
  Transmission Date: 20050211
  Serious: Yes (Hospitalization)
  Sender: FDA-Public Use
  Company Number: 2004208186US

PATIENT
  Sex: Female

DRUGS (2)
  1. CAMPTOSAR [Suspect]
     Indication: SMALL CELL LUNG CANCER STAGE UNSPECIFIED
  2. CISPLATIN [Concomitant]

REACTIONS (1)
  - DIARRHOEA [None]
